FAERS Safety Report 14503072 (Version 4)
Quarter: 2018Q3

REPORT INFORMATION
  Report Type: Spontaneous
  Country: US (occurrence: US)
  Receive Date: 20180208
  Receipt Date: 20180927
  Transmission Date: 20181010
  Serious: No
  Sender: FDA-Public Use
  Company Number: US-PFIZER INC-2016365333

PATIENT
  Age: 32 Year
  Sex: Female

DRUGS (1)
  1. LYRICA [Suspect]
     Active Substance: PREGABALIN
     Dosage: 900 MG, DAILY [300MG CAPSULE/ QTY 90/ DAYS SUPPLY 30]

REACTIONS (2)
  - Obesity [Unknown]
  - Prescribed overdose [Unknown]
